FAERS Safety Report 7735608-9 (Version None)
Quarter: 2011Q3

REPORT INFORMATION
  Report Type: 
  Country: None (occurrence: None)
  Receive Date: 20110907
  Receipt Date: 20110830
  Transmission Date: 20111222
  Serious: Yes (Hospitalization, Disabling)
  Sender: FDA-Public Use
  Company Number: US-MERCK-1105USA03432

PATIENT
  Age: 51 Year
  Sex: Female
  Weight: 80 kg

DRUGS (8)
  1. HORMONES (UNSPECIFIED) [Concomitant]
     Route: 065
     Dates: start: 19970101, end: 20010101
  2. FOSAMAX [Suspect]
     Indication: OSTEOPOROSIS
     Route: 048
     Dates: start: 20000401, end: 20020201
  3. FOSAMAX [Suspect]
     Indication: OSTEOPENIA
     Route: 048
     Dates: start: 20000401, end: 20020201
  4. FOSAMAX [Suspect]
     Route: 048
     Dates: start: 20020201, end: 20020701
  5. FOSAMAX [Suspect]
     Route: 048
     Dates: start: 20020701, end: 20090506
  6. SYNTHROID [Concomitant]
     Indication: HYPOTHYROIDISM
     Route: 065
  7. FOSAMAX [Suspect]
     Route: 048
     Dates: start: 20020201, end: 20020701
  8. FOSAMAX [Suspect]
     Route: 048
     Dates: start: 20020701, end: 20090506

REACTIONS (20)
  - ANAEMIA POSTOPERATIVE [None]
  - DEVICE FAILURE [None]
  - FALL [None]
  - HAEMORRHAGE [None]
  - SINUSITIS [None]
  - FEMUR FRACTURE [None]
  - FRACTURE NONUNION [None]
  - ARTHRITIS [None]
  - SCIATICA [None]
  - NECK PAIN [None]
  - VIITH NERVE PARALYSIS [None]
  - UTERINE CYST [None]
  - RHINITIS ALLERGIC [None]
  - OESOPHAGEAL DISORDER [None]
  - LOW TURNOVER OSTEOPATHY [None]
  - DIVERTICULUM INTESTINAL [None]
  - ADVERSE EVENT [None]
  - NERVE COMPRESSION [None]
  - DIABETES MELLITUS [None]
  - DEPRESSION [None]
